FAERS Safety Report 5368516-1 (Version None)
Quarter: 2007Q2

REPORT INFORMATION
  Report Type: 
  Country: None (occurrence: None)
  Receive Date: 20070620
  Receipt Date: 20070607
  Transmission Date: 20071010
  Serious: Yes (Death, Other)
  Sender: FDA-Public Use
  Company Number: 2006BI005086

PATIENT
  Age: 48 Year
  Sex: Male
  Weight: 83.0083 kg

DRUGS (13)
  1. AVONEX [Suspect]
     Indication: MULTIPLE SCLEROSIS
     Dosage: 30 UG; QW; IM
     Route: 030
     Dates: start: 19990101, end: 20030101
  2. AVONEX [Suspect]
     Indication: MULTIPLE SCLEROSIS
     Dosage: 30 UG; QW; IM
     Route: 030
     Dates: start: 20030101, end: 20070301
  3. HYDROCHLOROTHIAZIDE [Concomitant]
  4. HYDROCODONE BITARTRATE [Concomitant]
  5. RANITIDINE [Concomitant]
  6. BACLOFEN [Concomitant]
  7. MORPHINE [Concomitant]
  8. PANCRECARB [Concomitant]
  9. DOXYCYCLINE [Concomitant]
  10. GABAPENTIN [Concomitant]
  11. KLOR-CON [Concomitant]
  12. MULTI-VITAMIN [Concomitant]
  13. DETROL LA [Concomitant]

REACTIONS (9)
  - BILE DUCT OBSTRUCTION [None]
  - BLOOD POTASSIUM DECREASED [None]
  - CHROMATURIA [None]
  - JAUNDICE [None]
  - OCULAR ICTERUS [None]
  - PANCREATIC CARCINOMA [None]
  - PANCREATIC DUCT OBSTRUCTION [None]
  - PANCREATITIS [None]
  - VOMITING [None]
